FAERS Safety Report 16366100 (Version 1)
Quarter: 2019Q2

REPORT INFORMATION
  Report Type: Spontaneous
  Country: IT (occurrence: IT)
  Receive Date: 20190529
  Receipt Date: 20190529
  Transmission Date: 20190711
  Serious: Yes (Other)
  Sender: FDA-Public Use
  Company Number: IT-JNJFOC-20181008608

PATIENT

DRUGS (1)
  1. INFLIXIMAB, RECOMBINANT [Suspect]
     Active Substance: INFLIXIMAB
     Indication: BEHCET^S SYNDROME
     Route: 042

REACTIONS (7)
  - Angioedema [Unknown]
  - Diffuse alopecia [Unknown]
  - Tuberculosis [Unknown]
  - Off label use [Unknown]
  - Infusion site reaction [Unknown]
  - Drug ineffective for unapproved indication [Unknown]
  - Urticaria [Unknown]
